FAERS Safety Report 5249870-8 (Version None)
Quarter: 2007Q1

REPORT INFORMATION
  Report Type: 
  Country: None (occurrence: None)
  Receive Date: 20070228
  Receipt Date: 20070221
  Transmission Date: 20070707
  Serious: Yes (Other)
  Sender: FDA-Public Use
  Company Number: 2006UW19327

PATIENT
  Age: 57 Year
  Sex: Female
  Weight: 67.7 kg

DRUGS (3)
  1. TAMOXIFEN CITRATE [Suspect]
     Indication: BREAST CANCER FEMALE
     Route: 048
     Dates: start: 19990101, end: 19990301
  2. SERZONE [Concomitant]
     Indication: DEPRESSION
  3. REMERON [Concomitant]
     Indication: DEPRESSION

REACTIONS (3)
  - DEPRESSION [None]
  - MALAISE [None]
  - SUICIDAL IDEATION [None]
